FAERS Safety Report 4280293-4 (Version None)
Quarter: 2004Q1

REPORT INFORMATION
  Report Type: 
  Country: None (occurrence: None)
  Receive Date: 20040126
  Receipt Date: 20040112
  Transmission Date: 20041129
  Serious: Yes (Other)
  Sender: FDA-Public Use
  Company Number: 2003035190

PATIENT
  Age: 64 Year
  Sex: Male
  Weight: 97.5234 kg

DRUGS (4)
  1. TIKOSYN [Suspect]
     Indication: ATRIAL FIBRILLATION
     Dosage: 1000 MCG (BID), ORAL
     Route: 048
     Dates: start: 20030805, end: 20030813
  2. DIGOXIN [Concomitant]
  3. WARFARIN SODIUM [Concomitant]
  4. NITROFURANTOIN (NITROFURATOIN) [Concomitant]

REACTIONS (5)
  - ATRIAL FIBRILLATION [None]
  - BLOOD POTASSIUM DECREASED [None]
  - BLOOD PRESSURE DECREASED [None]
  - DRUG INEFFECTIVE [None]
  - MEDICATION ERROR [None]
